FAERS Safety Report 17647588 (Version 2)
Quarter: 2020Q2

REPORT INFORMATION
  Report Type: Spontaneous
  Country: US (occurrence: US)
  Receive Date: 20200408
  Receipt Date: 20200615
  Transmission Date: 20200713
  Serious: No
  Sender: FDA-Public Use
  Company Number: US-VERTEX PHARMACEUTICALS-2020-007619

PATIENT
  Age: 40 Year
  Sex: Male

DRUGS (3)
  1. PULMOZYME [Concomitant]
     Active Substance: DORNASE ALFA
  2. TOBRAMYCIN. [Concomitant]
     Active Substance: TOBRAMYCIN
  3. TRIKAFTA [Suspect]
     Active Substance: ELEXACAFTOR\IVACAFTOR\TEZACAFTOR
     Indication: CYSTIC FIBROSIS
     Dosage: 2 ORANGE TABS(100 MG ELEXA/ 50 MG TEZA/ 75 MG IVA)AM ; 1 BLUE TAB (150MG IVA)PM
     Route: 048
     Dates: start: 20200309

REACTIONS (4)
  - Insomnia [Unknown]
  - Nasopharyngitis [Unknown]
  - Diarrhoea [Unknown]
  - Mucous stools [Unknown]

NARRATIVE: CASE EVENT DATE: 20200311
